FAERS Safety Report 21609369 (Version 3)
Quarter: 2023Q1

REPORT INFORMATION
  Report Type: Report from Study
  Country: US (occurrence: US)
  Receive Date: 20221117
  Receipt Date: 20230224
  Transmission Date: 20230417
  Serious: Yes (Death)
  Sender: FDA-Public Use
  Company Number: US-ABBVIE-4204523

PATIENT
  Sex: Male

DRUGS (1)
  1. IMBRUVICA [Suspect]
     Active Substance: IBRUTINIB
     Indication: Blood test abnormal
     Route: 048
     Dates: start: 2018

REACTIONS (2)
  - Lung cancer metastatic [Fatal]
  - Diarrhoea [Recovering/Resolving]
